FAERS Safety Report 9022310 (Version 1)
Quarter: 2013Q1

REPORT INFORMATION
  Report Type: Spontaneous
  Country: FR (occurrence: FR)
  Receive Date: 20130118
  Receipt Date: 20130118
  Transmission Date: 20140127
  Serious: No
  Sender: FDA-Public Use
  Company Number: FR-JNJFOC-20130105726

PATIENT
  Age: 60 Year
  Sex: Female

DRUGS (1)
  1. DUROGESIC [Suspect]
     Indication: PAIN
     Route: 062

REACTIONS (2)
  - Drug ineffective [Recovered/Resolved]
  - Incorrect drug administration duration [Unknown]
